FAERS Safety Report 12972009 (Version 3)
Quarter: 2017Q1

REPORT INFORMATION
  Report Type: Report from Study
  Country: GT (occurrence: GT)
  Receive Date: 20161124
  Receipt Date: 20170310
  Transmission Date: 20170428
  Serious: Yes (Life-Threatening, Hospitalization)
  Sender: FDA-Public Use
  Company Number: GT-ROCHE-1857674

PATIENT
  Age: 40 Year
  Sex: Female
  Weight: 73 kg

DRUGS (27)
  1. TRASTUZUMAB [Suspect]
     Active Substance: TRASTUZUMAB
     Indication: HER-2 POSITIVE BREAST CANCER
     Dosage: CYCLE 1
     Route: 042
     Dates: start: 20150824
  2. TRASTUZUMAB [Suspect]
     Active Substance: TRASTUZUMAB
     Dosage: CYCLE 4
     Route: 042
     Dates: start: 20151027
  3. TRASTUZUMAB [Suspect]
     Active Substance: TRASTUZUMAB
     Dosage: CYCLE 6
     Route: 042
     Dates: start: 20151210
  4. TRASTUZUMAB [Suspect]
     Active Substance: TRASTUZUMAB
     Dosage: CYCLE 7
     Route: 042
     Dates: start: 20160104
  5. TRASTUZUMAB [Suspect]
     Active Substance: TRASTUZUMAB
     Dosage: CYCLE 2
     Route: 042
     Dates: start: 20150914
  6. TRASTUZUMAB [Suspect]
     Active Substance: TRASTUZUMAB
     Dosage: CYCLE 12
     Route: 042
     Dates: start: 20160421
  7. NISTATINA [Concomitant]
     Active Substance: NYSTATIN
     Indication: PROPHYLAXIS
     Route: 065
     Dates: start: 20161124, end: 20161125
  8. ESOMEPRAZOL [Concomitant]
     Active Substance: ESOMEPRAZOLE
     Dosage: INDICATION: GASTRIC PROTECTOR
     Route: 065
     Dates: start: 20161122, end: 20161125
  9. TRASTUZUMAB [Suspect]
     Active Substance: TRASTUZUMAB
     Dosage: CYCLE 3
     Route: 042
     Dates: start: 20151005
  10. TRASTUZUMAB [Suspect]
     Active Substance: TRASTUZUMAB
     Dosage: CYCLE 8
     Route: 042
     Dates: start: 20160125
  11. TRASTUZUMAB [Suspect]
     Active Substance: TRASTUZUMAB
     Dosage: CYCLE 9
     Route: 042
     Dates: start: 20160218
  12. TRASTUZUMAB [Suspect]
     Active Substance: TRASTUZUMAB
     Dosage: CYCLE 13
     Route: 042
     Dates: start: 20160512
  13. ENANTYUM [Concomitant]
     Active Substance: DEXKETOPROFEN TROMETAMOL
     Dosage: INDICATION: ANALGESIC
     Route: 065
     Dates: start: 20161122, end: 20161124
  14. TRAMADOL. [Concomitant]
     Active Substance: TRAMADOL
     Dosage: INDICATION: ANALGESIC
     Route: 065
     Dates: start: 20161122, end: 20161122
  15. CARBOXYMETHYLCYSTEINE [Concomitant]
     Indication: PRODUCTIVE COUGH
     Route: 065
     Dates: start: 20161125
  16. TRASTUZUMAB [Suspect]
     Active Substance: TRASTUZUMAB
     Dosage: CYCLE 5
     Route: 042
     Dates: start: 20151117
  17. LACTULOSE. [Concomitant]
     Active Substance: LACTULOSE
     Indication: CONSTIPATION
     Route: 065
     Dates: start: 20161124, end: 20161124
  18. TRASTUZUMAB [Suspect]
     Active Substance: TRASTUZUMAB
     Dosage: CYCLE 10
     Route: 042
     Dates: start: 20160310
  19. GABAPENTIN. [Concomitant]
     Active Substance: GABAPENTIN
     Indication: PERIPHERAL SENSORY NEUROPATHY
     Route: 065
     Dates: start: 20150914
  20. CEFTRIAXONA [Concomitant]
     Active Substance: CEFTRIAXONE
     Indication: PROPHYLAXIS
     Route: 065
     Dates: start: 20161122, end: 20161122
  21. TRASTUZUMAB [Suspect]
     Active Substance: TRASTUZUMAB
     Dosage: CYCLE 11
     Route: 042
     Dates: start: 20160331
  22. KETOROLACO [Concomitant]
     Dosage: INDICATION: ANALGESIC
     Route: 065
     Dates: start: 20161122, end: 20161124
  23. AMBROXOL [Concomitant]
     Active Substance: AMBROXOL
     Indication: PRODUCTIVE COUGH
     Route: 065
     Dates: start: 20161124, end: 20161124
  24. TRASTUZUMAB [Suspect]
     Active Substance: TRASTUZUMAB
     Dosage: CYCLE 14,WHICH WAS MOST RECENT DOSE.
     Route: 042
     Dates: start: 20160603
  25. VENOFER [Concomitant]
     Active Substance: IRON SUCROSE
     Indication: ANAEMIA
     Route: 065
     Dates: start: 20161122, end: 20161125
  26. IPRATROPIUM [Concomitant]
     Active Substance: IPRATROPIUM
     Indication: PRODUCTIVE COUGH
     Route: 065
     Dates: start: 20161122, end: 20161125
  27. NACL .9% [Concomitant]
     Indication: PRODUCTIVE COUGH
     Route: 065
     Dates: start: 20161122, end: 20161125

REACTIONS (1)
  - Cardiac tamponade [Recovered/Resolved]

NARRATIVE: CASE EVENT DATE: 20161121
